FAERS Safety Report 5145824-0 (Version None)
Quarter: 2006Q4

REPORT INFORMATION
  Report Type: 
  Country: None (occurrence: None)
  Receive Date: 20061108
  Receipt Date: 20060110
  Transmission Date: 20070319
  Serious: Yes (Hospitalization, Other)
  Sender: FDA-Public Use
  Company Number: US-BAYER-200610281BWH

PATIENT
  Age: 47 Year
  Sex: Female
  Weight: 60 kg

DRUGS (5)
  1. SORAFENIB [Suspect]
     Indication: METASTATIC RENAL CELL CARCINOMA
     Dosage: TOTAL DAILY DOSE: 400 MG  UNIT DOSE: 200 MG
     Route: 048
     Dates: start: 20051208, end: 20051230
  2. COLACE [Concomitant]
     Dosage: UNIT DOSE: 100 MG
     Route: 048
  3. HYDROMORPHONE HYDROCHLORIDE [Concomitant]
     Route: 048
     Dates: start: 20050812
  4. METHADONE HCL [Concomitant]
     Route: 048
     Dates: start: 20050812
  5. FENTANYL CITRATE [Concomitant]
     Route: 062

REACTIONS (7)
  - DEHYDRATION [None]
  - ENTERITIS [None]
  - FATIGUE [None]
  - HYPERTENSION [None]
  - NAUSEA [None]
  - ODYNOPHAGIA [None]
  - PLATELET DISORDER [None]
